FAERS Safety Report 14379537 (Version 2)
Quarter: 2020Q4

REPORT INFORMATION
  Report Type: Spontaneous
  Country: FR (occurrence: FR)
  Receive Date: 20180112
  Receipt Date: 20201211
  Transmission Date: 20210113
  Serious: Yes (Hospitalization, Disabling, Other)
  Sender: FDA-Public Use
  Company Number: FR-CIPLA LTD.-2017FR31123

PATIENT

DRUGS (23)
  1. OGASTORO [Concomitant]
     Active Substance: LANSOPRAZOLE
     Indication: PRODUCT USED FOR UNKNOWN INDICATION
     Dosage: UNK, QD
     Route: 065
  2. LUTERAN [Concomitant]
     Active Substance: CHLORMADINONE ACETATE
     Indication: PRODUCT USED FOR UNKNOWN INDICATION
     Dosage: UNK
     Route: 065
     Dates: start: 2008
  3. DETURGYLONE [OXYMETAZOLINE HYDROCHLORIDE;PREDNISOLONE SODIUM PHOSPHATE [Concomitant]
     Indication: PRODUCT USED FOR UNKNOWN INDICATION
     Dosage: 3 DOSAGE FORM, QD
     Route: 065
  4. GENTALLINE [Concomitant]
     Active Substance: GENTAMICIN SULFATE
     Indication: PRODUCT USED FOR UNKNOWN INDICATION
     Dosage: 1 DOSAGE FORM, UNK
     Route: 065
  5. MUCOMYST [Concomitant]
     Active Substance: ACETYLCYSTEINE
     Indication: PRODUCT USED FOR UNKNOWN INDICATION
     Dosage: 1 DOSAGE FORM, UNK
     Route: 065
  6. OFLOCET [OFLOXACIN] [Concomitant]
     Active Substance: OFLOXACIN
     Indication: PRODUCT USED FOR UNKNOWN INDICATION
     Dosage: 1 DOSAGE FORM, QD
     Route: 001
  7. LEVOFLOXACIN. [Suspect]
     Active Substance: LEVOFLOXACIN
     Indication: NASOPHARYNGITIS
     Dosage: 500 MILLIGRAM, QD, FILM COATED TABLET
     Route: 048
     Dates: start: 20110616, end: 20110617
  8. ACETYLSALICYLATE LYSINE [Concomitant]
     Active Substance: ASPIRIN DL-LYSINE
     Dosage: 3 DOSAGE FORM, QD
     Route: 065
  9. XYZALL [Concomitant]
     Active Substance: LEVOCETIRIZINE DIHYDROCHLORIDE
     Indication: PRODUCT USED FOR UNKNOWN INDICATION
     Dosage: UNK
     Route: 065
  10. DOLIPRANE [Concomitant]
     Active Substance: ACETAMINOPHEN
     Indication: PAIN
     Dosage: 1 DOSAGE FORM, TID
     Route: 048
  11. LEVOFLOXACIN. [Suspect]
     Active Substance: LEVOFLOXACIN
     Indication: SINUSITIS
     Dosage: 500 MILLIGRAM, QD, FILM COATED TABLET
     Route: 048
     Dates: start: 20110617, end: 20110618
  12. ACETYLSALICYLATE LYSINE [Concomitant]
     Active Substance: ASPIRIN DL-LYSINE
     Indication: PRODUCT USED FOR UNKNOWN INDICATION
     Dosage: 1 DOSAGE FORM, Q3D
     Route: 065
  13. PREDNISOLONE. [Concomitant]
     Active Substance: PREDNISOLONE
     Indication: PRODUCT USED FOR UNKNOWN INDICATION
     Dosage: UNK
     Route: 065
  14. SOLUPRED [PREDNISOLONE] [Suspect]
     Active Substance: PREDNISOLONE
     Indication: SINUSITIS
     Dosage: 20 MILLIGRAM, QD, TABLET
     Route: 048
     Dates: start: 201106, end: 201106
  15. CELESTENE [BETAMETHASONE] [Concomitant]
     Active Substance: BETAMETHASONE
     Indication: PRODUCT USED FOR UNKNOWN INDICATION
     Dosage: 1 DOSAGE FORM, QD, 1 AMPOULE A DAY
     Route: 065
  16. LEVOFLOXACIN. [Suspect]
     Active Substance: LEVOFLOXACIN
     Dosage: 1 DOSAGE FORM, QD
     Route: 065
     Dates: start: 20100520
  17. GYNO-PEVARYL [Concomitant]
     Active Substance: ECONAZOLE NITRATE
     Indication: PRODUCT USED FOR UNKNOWN INDICATION
     Dosage: 1 DOSAGE FORM, TID
     Route: 065
  18. MUCOMYST [Concomitant]
     Active Substance: ACETYLCYSTEINE
     Dosage: 1 DOSAGE FORM, UNK
     Route: 065
  19. LEVOFLOXACIN. [Suspect]
     Active Substance: LEVOFLOXACIN
     Dosage: 1 DOSAGE FORM, QD
     Route: 065
     Dates: start: 20100520
  20. ZELITREX [Concomitant]
     Active Substance: VALACYCLOVIR HYDROCHLORIDE
     Indication: PRODUCT USED FOR UNKNOWN INDICATION
     Dosage: 1 DOSAGE FORM, QD
     Route: 065
  21. SOLUPRED [PREDNISOLONE] [Suspect]
     Active Substance: PREDNISOLONE
     Dosage: 20 MILLIGRAM, QD
     Route: 048
     Dates: start: 201206
  22. CALYPTOL [CINEOLE;PINUS SPP. OIL;ROSMARINUS OFFICINALIS OIL;TERPINEOL; [Concomitant]
     Indication: PRODUCT USED FOR UNKNOWN INDICATION
     Dosage: 1 DOSAGE FORM, QD
     Route: 065
  23. ULTRA-LEVURE [Concomitant]
     Active Substance: SACCHAROMYCES CEREVISIAE
     Indication: PRODUCT USED FOR UNKNOWN INDICATION
     Dosage: 1 DOSAGE FORM, BID
     Route: 065

REACTIONS (22)
  - Myoclonus [Not Recovered/Not Resolved]
  - Muscle atrophy [Not Recovered/Not Resolved]
  - Musculoskeletal injury [Unknown]
  - Neuropathy peripheral [Not Recovered/Not Resolved]
  - Sciatica [Not Recovered/Not Resolved]
  - Pain in extremity [Not Recovered/Not Resolved]
  - Pain [Not Recovered/Not Resolved]
  - Tendonitis [Not Recovered/Not Resolved]
  - Rash [Unknown]
  - Periarthritis [Unknown]
  - Tenosynovitis [Not Recovered/Not Resolved]
  - Neuralgia [Not Recovered/Not Resolved]
  - Rotator cuff syndrome [Not Recovered/Not Resolved]
  - Condition aggravated [Not Recovered/Not Resolved]
  - Neck pain [Not Recovered/Not Resolved]
  - Asthenia [Not Recovered/Not Resolved]
  - Complex regional pain syndrome [Unknown]
  - Pericarditis [Unknown]
  - Intervertebral disc protrusion [Not Recovered/Not Resolved]
  - Paraesthesia [Not Recovered/Not Resolved]
  - Tendon pain [Not Recovered/Not Resolved]
  - Arthralgia [Unknown]

NARRATIVE: CASE EVENT DATE: 201106
